FAERS Safety Report 6729787-X (Version None)
Quarter: 2010Q2

REPORT INFORMATION
  Report Type: 
  Country: None (occurrence: None)
  Receive Date: 20100518
  Receipt Date: 20100506
  Transmission Date: 20101027
  Serious: Yes (Other)
  Sender: FDA-Public Use
  Company Number: US-PFIZER INC-2010058097

PATIENT
  Sex: Female
  Weight: 52.608 kg

DRUGS (3)
  1. XANAX [Suspect]
     Indication: STRESS
     Dosage: 1 MG, 1X/DAY
     Route: 048
  2. XANAX [Interacting]
     Indication: DEPRESSION
  3. DIVALPROEX SODIUM [Interacting]
     Indication: DEPRESSION
     Dosage: 1000 MG, 1X/DAY
     Dates: start: 20100430, end: 20100504

REACTIONS (6)
  - AGGRESSION [None]
  - DIZZINESS [None]
  - DRUG INTERACTION [None]
  - FEELING ABNORMAL [None]
  - FEELING DRUNK [None]
  - INSOMNIA [None]
